FAERS Safety Report 15103565 (Version 1)
Quarter: 2018Q3

REPORT INFORMATION
  Report Type: Report from Study
  Country: FR (occurrence: FR)
  Receive Date: 20180703
  Receipt Date: 20180703
  Transmission Date: 20181010
  Serious: Yes (Other)
  Sender: FDA-Public Use
  Company Number: FR-JNJFOC-20180420490

PATIENT
  Age: 28 Year
  Sex: Male
  Weight: 88 kg

DRUGS (2)
  1. RIVAROXABAN [Concomitant]
     Active Substance: RIVAROXABAN
     Indication: PHLEBITIS
     Route: 048
     Dates: start: 20180301
  2. BLINDED; RIVAROXABAN [Suspect]
     Active Substance: RIVAROXABAN
     Indication: THROMBOSIS PROPHYLAXIS
     Route: 048
     Dates: start: 20180215

REACTIONS (5)
  - Oedema [Recovered/Resolved]
  - Deep vein thrombosis [Recovered/Resolved]
  - Pain in extremity [Recovered/Resolved]
  - Deep vein thrombosis [Recovered/Resolved]
  - Pain in extremity [Recovering/Resolving]

NARRATIVE: CASE EVENT DATE: 201802
